FAERS Safety Report 4954098-2 (Version None)
Quarter: 2006Q1

REPORT INFORMATION
  Report Type: 
  Country: None (occurrence: None)
  Receive Date: 20060327
  Receipt Date: 20060303
  Transmission Date: 20060701
  Serious: No
  Sender: FDA-Public Use
  Company Number: AU-GLAXOSMITHKLINE-B0415390A

PATIENT
  Sex: Female

DRUGS (1)
  1. MALARONE [Suspect]

REACTIONS (1)
  - BLOOD LACTATE DEHYDROGENASE ABNORMAL [None]
